FAERS Safety Report 18840755 (Version 1)
Quarter: 2021Q1

REPORT INFORMATION
  Report Type: Spontaneous
  Country: US (occurrence: US)
  Receive Date: 20210204
  Receipt Date: 20210204
  Transmission Date: 20210419
  Serious: Yes (Disabling)
  Sender: FDA-Public Use
  Company Number: US-009507513-2101USA011676

PATIENT
  Sex: Female
  Weight: 79 kg

DRUGS (8)
  1. ENTYVIO [Suspect]
     Active Substance: VEDOLIZUMAB
     Dosage: 300 MILLIGRAM, EVERY 4 WEEKS
     Route: 042
     Dates: start: 20201222
  2. DIOVAN [Concomitant]
     Active Substance: VALSARTAN
     Indication: HYPERTENSION
     Dosage: UNK
  3. SYNTHROID [Concomitant]
     Active Substance: LEVOTHYROXINE SODIUM
     Dosage: UNK
  4. HYDROCORTISONE. [Concomitant]
     Active Substance: HYDROCORTISONE
     Dosage: UNK
  5. ENTYVIO [Suspect]
     Active Substance: VEDOLIZUMAB
     Dosage: 300 MILLIGRAM, EVERY 4 WEEKS
     Route: 042
     Dates: start: 2020
  6. ZETIA [Suspect]
     Active Substance: EZETIMIBE
     Indication: BLOOD CHOLESTEROL
     Dosage: UNK
     Route: 048
     Dates: end: 2020
  7. ENTYVIO [Suspect]
     Active Substance: VEDOLIZUMAB
     Indication: COLITIS ULCERATIVE
     Dosage: 300 MILLIGRAM AT AN UNSPECIFIED FREQUENCY
     Route: 042
     Dates: start: 202007
  8. VALTREX [Concomitant]
     Active Substance: VALACYCLOVIR HYDROCHLORIDE
     Dosage: UNK

REACTIONS (7)
  - Arthralgia [Not Recovered/Not Resolved]
  - Asthenia [Not Recovered/Not Resolved]
  - Myalgia [Not Recovered/Not Resolved]
  - Movement disorder [Not Recovered/Not Resolved]
  - Pain [Not Recovered/Not Resolved]
  - Fatigue [Not Recovered/Not Resolved]
  - Gastrointestinal inflammation [Not Recovered/Not Resolved]

NARRATIVE: CASE EVENT DATE: 2020
